FAERS Safety Report 9565079 (Version 1)
Quarter: 2013Q3

REPORT INFORMATION
  Report Type: Spontaneous
  Country: CN (occurrence: CN)
  Receive Date: 20130930
  Receipt Date: 20130930
  Transmission Date: 20140515
  Serious: Yes (Other)
  Sender: FDA-Public Use
  Company Number: CN-PFIZER INC-2013277363

PATIENT
  Age: 55 Year
  Sex: Male
  Weight: 90 kg

DRUGS (6)
  1. METHOTREXATE SODIUM [Suspect]
     Dosage: 7.5 MG, WEEKLY
     Route: 048
     Dates: start: 20120404
  2. MEDROL [Suspect]
     Dosage: 4 MG, 1X/DAY
     Route: 048
     Dates: start: 20120412, end: 20120430
  3. LEFLUNOMIDE [Concomitant]
     Dosage: 10 MG, 1X/DAY
     Route: 048
     Dates: start: 20120404, end: 20120412
  4. LOXOPROFEN SODIUM [Concomitant]
     Dosage: 60 MG, 3X/DAY
     Route: 048
     Dates: start: 20120404, end: 20120412
  5. PREDNISONE ACETATE [Concomitant]
     Dosage: 5 MG, 1X/DAY
     Route: 048
     Dates: start: 20120404, end: 20120412
  6. CHLORZOXAZONE [Concomitant]
     Dosage: 2 DF, 3X/DAY
     Route: 048

REACTIONS (1)
  - Hepatocellular injury [Recovered/Resolved]
